FAERS Safety Report 9981372 (Version 1)
Quarter: 2014Q1

REPORT INFORMATION
  Report Type: Spontaneous
  Country: US (occurrence: None)
  Receive Date: 20140306
  Receipt Date: 20140306
  Transmission Date: 20141002
  Serious: No
  Sender: FDA-Public Use
  Company Number: None

PATIENT
  Age: 58 Year
  Sex: Male
  Weight: 83.01 kg

DRUGS (1)
  1. CYCLOBENZAPRINE [Suspect]
     Indication: TEMPOROMANDIBULAR JOINT SYNDROME
     Route: 048
     Dates: start: 20140228, end: 20140303

REACTIONS (3)
  - Heart rate irregular [None]
  - Heart rate increased [None]
  - Depression [None]
